FAERS Safety Report 10043351 (Version 1)
Quarter: 2014Q1

REPORT INFORMATION
  Report Type: Spontaneous
  Country: US (occurrence: US)
  Receive Date: 20140328
  Receipt Date: 20140328
  Transmission Date: 20141002
  Serious: Yes (Hospitalization)
  Sender: FDA-Public Use
  Company Number: US-SA-2014SA038894

PATIENT
  Age: 37 Year
  Sex: Female
  Weight: 53.5 kg

DRUGS (1)
  1. CEREZYME [Suspect]
     Indication: GAUCHER^S DISEASE
     Dosage: DOSE : 1600 U DOSE:29.9 UNIT(S)/KILOGRAM BODYWEIGHT
     Route: 042
     Dates: start: 20120116

REACTIONS (2)
  - Device related infection [Unknown]
  - Pyrexia [Unknown]
